FAERS Safety Report 6914009-7 (Version None)
Quarter: 2010Q3

REPORT INFORMATION
  Report Type: 
  Country: None (occurrence: None)
  Receive Date: 20100809
  Receipt Date: 20100727
  Transmission Date: 20110219
  Serious: Yes (Hospitalization)
  Sender: FDA-Public Use
  Company Number: PHHY2010FI49002

PATIENT
  Sex: Female

DRUGS (3)
  1. SEQUIDOT [Suspect]
     Indication: HORMONE THERAPY
     Dosage: UNK
     Route: 062
     Dates: start: 20091013
  2. VAGIFEM [Concomitant]
     Dosage: 25 UG, 1 TO 2 SUPPOSITORIES PER WEEK
     Route: 067
     Dates: start: 20090924
  3. SIMVASTATIN [Concomitant]
     Indication: BLOOD CHOLESTEROL
     Dosage: 20 MG PER DAY
     Dates: start: 20100527

REACTIONS (1)
  - CEREBRAL INFARCTION [None]
